FAERS Safety Report 13240619 (Version 1)
Quarter: 2017Q1

REPORT INFORMATION
  Report Type: Spontaneous
  Country: GB (occurrence: GB)
  Receive Date: 20170216
  Receipt Date: 20170216
  Transmission Date: 20170428
  Serious: Yes (Other)
  Sender: FDA-Public Use
  Company Number: GB-JNJFOC-20170214720

PATIENT
  Age: 80 Year
  Sex: Male
  Weight: 91 kg

DRUGS (5)
  1. HYPROMELLOSE [Concomitant]
     Active Substance: HYPROMELLOSES
     Route: 065
     Dates: start: 20151118
  2. BISOPROLOL [Concomitant]
     Active Substance: BISOPROLOL
     Route: 065
     Dates: start: 20160819
  3. VISCOTEARS [Concomitant]
     Active Substance: CARBOMER
     Route: 065
     Dates: start: 20151118
  4. XARELTO [Suspect]
     Active Substance: RIVAROXABAN
     Indication: PRODUCT USED FOR UNKNOWN INDICATION
     Route: 048
     Dates: start: 20150513
  5. ASPIRIN. [Concomitant]
     Active Substance: ASPIRIN
     Route: 065
     Dates: start: 20170203

REACTIONS (2)
  - Vomiting [Recovered/Resolved]
  - Abdominal discomfort [Unknown]

NARRATIVE: CASE EVENT DATE: 20150515
